FAERS Safety Report 5049262-0 (Version None)
Quarter: 2006Q3

REPORT INFORMATION
  Report Type: 
  Country: None (occurrence: None)
  Receive Date: 20060707
  Receipt Date: 20060622
  Transmission Date: 20061208
  Serious: No
  Sender: FDA-Public Use
  Company Number: 34797

PATIENT
  Age: 41 Year
  Sex: Female

DRUGS (4)
  1. NEVANAC [Suspect]
     Indication: PROPHYLAXIS
     Dosage: 1 GTT OS BID OPHT
     Route: 047
     Dates: start: 20060301, end: 20060301
  2. ASPIRIN [Concomitant]
  3. VIGAMOX [Concomitant]
  4. FLAREX [Concomitant]

REACTIONS (6)
  - EYE DISORDER [None]
  - EYE IRRITATION [None]
  - INFLAMMATION [None]
  - PHARMACEUTICAL PRODUCT COMPLAINT [None]
  - POST PROCEDURAL COMPLICATION [None]
  - SENSATION OF FOREIGN BODY [None]
